FAERS Safety Report 13081771 (Version 1)
Quarter: 2017Q1

REPORT INFORMATION
  Report Type: Spontaneous
  Country: US (occurrence: US)
  Receive Date: 20170103
  Receipt Date: 20170103
  Transmission Date: 20170428
  Serious: No
  Sender: FDA-Public Use
  Company Number: US-PFIZER INC-2016592169

PATIENT
  Sex: Female

DRUGS (1)
  1. TOVIAZ [Suspect]
     Active Substance: FESOTERODINE FUMARATE
     Dosage: 8 MG, UNK (SHE HAS BEEN TAKING 2 OF THE 4 MG TO EQUAL OUT THE CORRECT DOSAGE)

REACTIONS (2)
  - Drug dispensing error [Unknown]
  - Dry mouth [Unknown]
